FAERS Safety Report 10723696 (Version 1)
Quarter: 2015Q1

REPORT INFORMATION
  Report Type: Spontaneous
  Country: US (occurrence: None)
  Receive Date: 20150114
  Receipt Date: 20150114
  Transmission Date: 20150721
  Serious: Yes (Other)
  Sender: FDA-Public Use
  Company Number: 2015LO000358/PC7663029

PATIENT
  Sex: Female

DRUGS (2)
  1. SKIN RENEW DARK SPOT OVERNIGHT PEEL [Suspect]
     Active Substance: COSMETICS
  2. GARNIER SKIN RENEW DAILY MOISTURE ANTI SUN DAMAGE [Suspect]
     Active Substance: AVOBENZONE\OCTISALATE\OCTOCRYLENE

REACTIONS (6)
  - Rash [None]
  - Throat tightness [None]
  - Reaction to drug excipients [None]
  - Erythema [None]
  - Nasal congestion [None]
  - Oropharyngeal pain [None]

NARRATIVE: CASE EVENT DATE: 201412
